FAERS Safety Report 13294497 (Version 17)
Quarter: 2018Q2

REPORT INFORMATION
  Report Type: Spontaneous
  Country: FR (occurrence: FR)
  Receive Date: 20170303
  Receipt Date: 20180531
  Transmission Date: 20180711
  Serious: Yes (Hospitalization)
  Sender: FDA-Public Use
  Company Number: FR-009507513-1702FRA010468

PATIENT
  Age: 33 Year
  Sex: Male
  Weight: 61 kg

DRUGS (26)
  1. ESOMEPRAZOLE [Concomitant]
     Active Substance: ESOMEPRAZOLE
     Indication: PRODUCT USED FOR UNKNOWN INDICATION
     Dosage: UNK
     Route: 048
  2. PROCARBAZINE [Concomitant]
     Active Substance: PROCARBAZINE
     Indication: PRODUCT USED FOR UNKNOWN INDICATION
     Dosage: UNK
     Route: 065
     Dates: end: 201604
  3. VINCRISTINE [Concomitant]
     Active Substance: VINCRISTINE
     Indication: PRODUCT USED FOR UNKNOWN INDICATION
     Dosage: UNK
     Route: 065
     Dates: end: 201604
  4. TEMODAL [Suspect]
     Active Substance: TEMOZOLOMIDE
     Dosage: 140 MG, QD
     Route: 048
  5. SOLUPRED (PREDNISOLONE SODIUM METAZOATE) [Suspect]
     Active Substance: PREDNISOLONE SODIUM METAZOATE
     Indication: RESPIRATORY DISORDER
     Dosage: 40 MG, QD
     Route: 048
     Dates: start: 20170128, end: 20170128
  6. IPRATROPIUM BROMIDE. [Suspect]
     Active Substance: IPRATROPIUM BROMIDE
     Indication: RESPIRATORY DISORDER
     Dosage: TIME TO ONSET: 4 DAY(S)
     Route: 055
     Dates: start: 20170128, end: 20170201
  7. ALBUTEROL. [Suspect]
     Active Substance: ALBUTEROL
     Indication: RESPIRATORY DISORDER
     Dosage: UNK
     Route: 055
     Dates: start: 20170128, end: 20170201
  8. LAMALINE (ACETAMINOPHEN\CAFFEINE\OPIUM) [Concomitant]
     Active Substance: ACETAMINOPHEN\CAFFEINE\OPIUM
     Dosage: 2 DF, QD
     Route: 065
     Dates: end: 20170201
  9. OFLOCET (OFLOXACIN) [Concomitant]
     Active Substance: OFLOXACIN
     Indication: PRODUCT USED FOR UNKNOWN INDICATION
     Dosage: 1 DF, QD (1 UG/LITER)
     Route: 031
     Dates: start: 20170128
  10. ATROVENT [Suspect]
     Active Substance: IPRATROPIUM BROMIDE
     Indication: RESPIRATORY DISORDER
     Dosage: TIME TO ONSET: 4 DAY(S)
     Route: 055
     Dates: start: 20170128, end: 20170201
  11. MEDROL [Concomitant]
     Active Substance: METHYLPREDNISOLONE
     Indication: PRODUCT USED FOR UNKNOWN INDICATION
     Dosage: UNK
     Route: 065
  12. DIFFU-K [Suspect]
     Active Substance: POTASSIUM CHLORIDE
     Indication: PRODUCT USED FOR UNKNOWN INDICATION
     Dosage: 1 DF, QD
     Route: 048
     Dates: start: 20160201, end: 20160201
  13. DIFFU-K [Suspect]
     Active Substance: POTASSIUM CHLORIDE
     Dosage: 1 DF, QD
     Route: 048
     Dates: start: 20170201
  14. LYRICA [Concomitant]
     Active Substance: PREGABALIN
     Indication: PRODUCT USED FOR UNKNOWN INDICATION
     Dosage: 100 MG, UNK
     Route: 048
  15. LEVETIRACETAM. [Concomitant]
     Active Substance: LEVETIRACETAM
     Indication: PRODUCT USED FOR UNKNOWN INDICATION
     Dosage: UNK
     Route: 065
  16. LAMALINE (ACETAMINOPHEN\CAFFEINE\OPIUM) [Concomitant]
     Active Substance: ACETAMINOPHEN\CAFFEINE\OPIUM
     Indication: PRODUCT USED FOR UNKNOWN INDICATION
     Dosage: DOSE: 6 DF (2 DF,3 IN 1 DAY (S)
     Route: 048
     Dates: end: 20170201
  17. CARMUSTINE [Concomitant]
     Active Substance: CARMUSTINE
     Indication: PRODUCT USED FOR UNKNOWN INDICATION
     Dosage: UNK
     Route: 065
     Dates: end: 201604
  18. TEMODAL [Suspect]
     Active Substance: TEMOZOLOMIDE
     Dosage: 140 MG, QD
     Route: 048
     Dates: start: 201601, end: 20170105
  19. TEMODAL [Suspect]
     Active Substance: TEMOZOLOMIDE
     Dosage: 140 MG, QD
     Route: 048
     Dates: end: 201611
  20. KEPPRA [Concomitant]
     Active Substance: LEVETIRACETAM
     Indication: PRODUCT USED FOR UNKNOWN INDICATION
     Dosage: 1000 MG, QD
     Route: 048
  21. AUGMENTIN [Concomitant]
     Active Substance: AMOXICILLIN\CLAVULANATE POTASSIUM
     Indication: PRODUCT USED FOR UNKNOWN INDICATION
     Dosage: UNK
     Route: 065
     Dates: start: 20170128
  22. TEMODAL [Suspect]
     Active Substance: TEMOZOLOMIDE
     Indication: ASTROCYTOMA
     Dosage: 140 MG, QD
     Route: 048
     Dates: start: 20170105
  23. URBANYL [Concomitant]
     Active Substance: CLOBAZAM
     Indication: PRODUCT USED FOR UNKNOWN INDICATION
     Dosage: 1 DF, QD (1 MCG/LITRE)
     Route: 048
  24. TEMODAL [Suspect]
     Active Substance: TEMOZOLOMIDE
     Dosage: 140 MG, QD
     Route: 048
     Dates: start: 201604
  25. ZEBINIX [Concomitant]
     Active Substance: ESLICARBAZEPINE ACETATE
     Indication: PRODUCT USED FOR UNKNOWN INDICATION
     Dosage: 1.5 DF, QD
     Route: 048
     Dates: end: 20170105
  26. ROVAMYCINE [Suspect]
     Active Substance: SPIRAMYCIN
     Indication: PLEURISY
     Dosage: 1.5 IU, UNK
     Route: 042
     Dates: start: 20170128, end: 20170201

REACTIONS (12)
  - Hepatic steatosis [None]
  - Hepatic function abnormal [None]
  - Hypogammaglobulinaemia [None]
  - Anaemia [None]
  - Thrombocytopenia [None]
  - Hepatocellular injury [Recovered/Resolved]
  - Pleurisy [None]
  - Herpes zoster [None]
  - Cholestasis [Not Recovered/Not Resolved]
  - Multiple-drug resistance [None]
  - Cytomegalovirus test positive [None]
  - Staphylococcus test positive [None]

NARRATIVE: CASE EVENT DATE: 20170201
